FAERS Safety Report 19193481 (Version 3)
Quarter: 2021Q4

REPORT INFORMATION
  Report Type: Spontaneous
  Country: JP (occurrence: JP)
  Receive Date: 20210428
  Receipt Date: 20211229
  Transmission Date: 20220303
  Serious: Yes (Hospitalization)
  Sender: FDA-Public Use
  Company Number: JP-JNJJAKJPN-202128296

PATIENT
  Age: 81 Year
  Sex: Male

DRUGS (3)
  1. ERLEADA [Suspect]
     Active Substance: APALUTAMIDE
     Indication: Product used for unknown indication
     Dosage: DOSE UNKNOWN
     Route: 048
  2. METILDIGOXIN [Suspect]
     Active Substance: METILDIGOXIN
     Dosage: DOSE UNKNOWN
     Route: 048
     Dates: start: 20210212, end: 20210408
  3. ELIQUIS [Concomitant]
     Active Substance: APIXABAN
     Dosage: DOSE UNKNOWN
     Route: 065

REACTIONS (2)
  - Hospitalisation [Unknown]
  - Cardioactive drug level increased [Unknown]

NARRATIVE: CASE EVENT DATE: 20210212
